FAERS Safety Report 10846474 (Version 1)
Quarter: 2015Q1

REPORT INFORMATION
  Report Type: Spontaneous
  Country: US (occurrence: US)
  Receive Date: 20150220
  Receipt Date: 20150220
  Transmission Date: 20150721
  Serious: Yes (Hospitalization)
  Sender: FDA-Public Use
  Company Number: US-ASTRAZENECA-2015SE15386

PATIENT
  Age: 20693 Day
  Sex: Male
  Weight: 96.6 kg

DRUGS (11)
  1. APRESOLAM [Concomitant]
     Indication: ANXIETY
     Route: 048
  2. TRIPLE FISH OIL [Concomitant]
     Indication: SUPPLEMENTATION THERAPY
     Route: 048
  3. SYMBICORT [Suspect]
     Active Substance: BUDESONIDE\FORMOTEROL FUMARATE DIHYDRATE
     Indication: ASTHMA
     Dosage: 160 UG TWO TIMES A DAY
     Route: 055
     Dates: start: 201404
  4. BETA 1.3 GLUCAN [Concomitant]
     Indication: BONE MARROW DISORDER
     Dosage: EVERY MORNING
     Route: 048
  5. IP6 AND INOSITOL [Concomitant]
     Indication: ILL-DEFINED DISORDER
     Route: 048
  6. ADVAIR HFA [Concomitant]
     Active Substance: FLUTICASONE PROPIONATE\SALMETEROL XINAFOATE
  7. IMITREX [Concomitant]
     Active Substance: SUMATRIPTAN\SUMATRIPTAN SUCCINATE
     Indication: MIGRAINE
     Route: 048
  8. ALPHA LIPOIC ACID [Concomitant]
     Active Substance: .ALPHA.-LIPOIC ACID
     Indication: SUPPLEMENTATION THERAPY
     Dosage: DAILY
     Route: 048
  9. VITAMIN D [Concomitant]
     Active Substance: CHOLECALCIFEROL
     Indication: VITAMIN SUPPLEMENTATION
     Dosage: 5000UNITS IN THE AM AND 2000 IN THE EVENING
     Route: 048
  10. SYMBICORT [Suspect]
     Active Substance: BUDESONIDE\FORMOTEROL FUMARATE DIHYDRATE
     Indication: ASTHMA
     Dosage: 80/4.5 MCG, 2 PUFFS TWO TIMES DAILY
     Route: 055
     Dates: start: 201404
  11. GENERIC FLONASE [Concomitant]
     Indication: NASAL CONGESTION
     Dosage: AT NIGHT
     Route: 045

REACTIONS (7)
  - Vomiting [Unknown]
  - Intentional product misuse [Unknown]
  - Small intestinal obstruction [Recovered/Resolved]
  - Drug ineffective [Unknown]
  - Cough [Unknown]
  - Abdominal pain [Recovered/Resolved]
  - Drug dose omission [Recovered/Resolved]

NARRATIVE: CASE EVENT DATE: 20150207
